FAERS Safety Report 8560539-4 (Version None)
Quarter: 2012Q3

REPORT INFORMATION
  Report Type: 
  Country: None (occurrence: None)
  Receive Date: 20120723
  Receipt Date: 20120705
  Transmission Date: 20120928
  Serious: Yes (Life-Threatening, Hospitalization)
  Sender: FDA-Public Use
  Company Number: IBUP20120003

PATIENT
  Age: 23 Year
  Sex: Female

DRUGS (9)
  1. ACETAMINOPHEN [Suspect]
     Indication: GASTROENTERITIS
  2. ACETAMINOPHEN [Suspect]
     Indication: LYMPHADENOPATHY
  3. ACETAMINOPHEN [Suspect]
     Indication: INFLUENZA LIKE ILLNESS
  4. IBUPROFEN [Suspect]
     Indication: INFLUENZA LIKE ILLNESS
  5. IBUPROFEN [Suspect]
     Indication: GASTROENTERITIS
  6. IBUPROFEN [Suspect]
     Indication: LYMPHADENOPATHY
  7. CLARITHROMYCIN [Suspect]
     Indication: GASTROENTERITIS
  8. CLARITHROMYCIN [Suspect]
     Indication: INFLUENZA LIKE ILLNESS
  9. CLARITHROMYCIN [Suspect]
     Indication: LYMPHADENOPATHY

REACTIONS (20)
  - OEDEMA [None]
  - HYPOXIA [None]
  - SKIN EXFOLIATION [None]
  - HAEMORRHAGIC DIATHESIS [None]
  - ENCEPHALOPATHY [None]
  - PURPURA [None]
  - INTERNATIONAL NORMALISED RATIO INCREASED [None]
  - ACUTE HEPATIC FAILURE [None]
  - ISCHAEMIA [None]
  - MUCOUS MEMBRANE DISORDER [None]
  - ORAL DISCOMFORT [None]
  - C-REACTIVE PROTEIN INCREASED [None]
  - DERMATITIS EXFOLIATIVE [None]
  - MULTI-ORGAN FAILURE [None]
  - DIALYSIS [None]
  - RASH MACULAR [None]
  - DRUG EFFECT DECREASED [None]
  - HAEMOGLOBIN DECREASED [None]
  - RESPIRATORY FAILURE [None]
  - COAGULOPATHY [None]
